FAERS Safety Report 6399976-5 (Version None)
Quarter: 2009Q4

REPORT INFORMATION
  Report Type: 
  Country: None (occurrence: None)
  Receive Date: 20091008
  Receipt Date: 20091008
  Transmission Date: 20100525
  Serious: Yes (Life-Threatening)
  Sender: FDA-Public Use
  Company Number: None

PATIENT
  Sex: Female

DRUGS (1)
  1. HYDROMORPHONE HCL [Suspect]
     Indication: PAIN
     Dosage: 1 MG ONCE IV BOLUS
     Route: 040
     Dates: start: 20081214, end: 20081214

REACTIONS (1)
  - UNRESPONSIVE TO STIMULI [None]
